FAERS Safety Report 15137100 (Version 1)
Quarter: 2018Q3

REPORT INFORMATION
  Report Type: Spontaneous
  Country: US (occurrence: US)
  Receive Date: 20180712
  Receipt Date: 20180712
  Transmission Date: 20181010
  Serious: Yes (Other)
  Sender: FDA-Public Use
  Company Number: US-FOUNDATIONCONSUMERHC-2018-US-009182

PATIENT
  Age: 26 Year
  Sex: Female
  Weight: 50.8 kg

DRUGS (6)
  1. LEVONORGESTREL (UNSPECIFIED) [Suspect]
     Active Substance: LEVONORGESTREL
     Indication: POST COITAL CONTRACEPTION
     Dosage: 1.5 MG
     Route: 048
     Dates: start: 20180411, end: 20180411
  2. FOLIC ACID. [Concomitant]
     Active Substance: FOLIC ACID
  3. SINGULAIR [Concomitant]
     Active Substance: MONTELUKAST SODIUM
  4. ALBUTEROL. [Concomitant]
     Active Substance: ALBUTEROL
     Route: 055
  5. BIOTIN [Concomitant]
     Active Substance: BIOTIN
  6. BEE POLLEN [Concomitant]
     Active Substance: BEE POLLEN

REACTIONS (3)
  - Vaginal haemorrhage [Recovered/Resolved]
  - Drug ineffective [Unknown]
  - Pregnancy after post coital contraception [Unknown]

NARRATIVE: CASE EVENT DATE: 20180411
